FAERS Safety Report 7911161-1 (Version None)
Quarter: 2011Q4

REPORT INFORMATION
  Report Type: 
  Country: None (occurrence: None)
  Receive Date: 20111109
  Receipt Date: 20111109
  Transmission Date: 20120403
  Serious: Yes (Hospitalization)
  Sender: FDA-Public Use
  Company Number: PRED20110101

PATIENT
  Age: 63 Year
  Sex: Male

DRUGS (5)
  1. AZATHIOPRINE [Suspect]
     Indication: AUTOIMMUNE HEPATITIS
     Dosage: 100 MG, 1 IN 1 D,
  2. AZATHIOPRINE [Suspect]
     Indication: BILIARY CIRRHOSIS PRIMARY
     Dosage: 100 MG, 1 IN 1 D,
  3. TACROLIMUS [Suspect]
     Indication: HEPATITIS CHOLESTATIC
     Dosage: 9 MG, 1 IN 1 D,
  4. PREDNISONE [Suspect]
     Indication: AUTOIMMUNE HEPATITIS
     Dosage: 60 MG, 1 IN 1 D, UNKNOWN
  5. PREDNISONE [Suspect]
     Indication: BILIARY CIRRHOSIS PRIMARY
     Dosage: 60 MG, 1 IN 1 D, UNKNOWN

REACTIONS (1)
  - LIPOMATOSIS [None]
